FAERS Safety Report 19194277 (Version 1)
Quarter: 2021Q2

REPORT INFORMATION
  Report Type: Spontaneous
  Country: US (occurrence: US)
  Receive Date: 20210429
  Receipt Date: 20210429
  Transmission Date: 20210717
  Serious: Yes (Hospitalization)
  Sender: FDA-Public Use
  Company Number: US-PFIZER INC-2004083518

PATIENT
  Age: 77 Year
  Sex: Male

DRUGS (7)
  1. ACETAMINOPHEN. [Concomitant]
     Active Substance: ACETAMINOPHEN
     Dosage: UNK
  2. PHENYTOIN. [Suspect]
     Active Substance: PHENYTOIN
     Indication: SEIZURE
     Dosage: 100 MG, THREE TIMES DAILY
     Route: 048
  3. ACETAMINOPHEN. [Concomitant]
     Active Substance: ACETAMINOPHEN
     Dosage: 650 MG, EVERY 4 HRS
     Route: 054
  4. RANITIDINE. [Interacting]
     Active Substance: RANITIDINE
     Dosage: 150 MG, TWICE DAILY
     Route: 048
  5. CODEINE [CODEINE PHOSPHATE] [Concomitant]
     Dosage: 12.5 ML, EVERY 4 HRS
     Route: 048
  6. PHENYTOIN. [Interacting]
     Active Substance: PHENYTOIN
     Dosage: 300 MG, THREE TIMES DAILY (SUSPENSION)
     Route: 048
  7. PHENYTOIN. [Interacting]
     Active Substance: PHENYTOIN
     Dosage: 100 MG, EVERY 8 HOURS
     Route: 048

REACTIONS (2)
  - Inhibitory drug interaction [Recovered/Resolved]
  - Anticonvulsant drug level increased [Recovered/Resolved]
